FAERS Safety Report 10053527 (Version 2)
Quarter: 2014Q2

REPORT INFORMATION
  Report Type: Spontaneous
  Country: US (occurrence: US)
  Receive Date: 20140402
  Receipt Date: 20140428
  Transmission Date: 20141212
  Serious: No
  Sender: FDA-Public Use
  Company Number: US-PFIZER INC-2014090702

PATIENT
  Age: 50 Year
  Sex: Female

DRUGS (1)
  1. LYRICA [Suspect]
     Dosage: 75 MG, UNK
     Dates: start: 20131220

REACTIONS (4)
  - Tooth fracture [Unknown]
  - Bruxism [Unknown]
  - Feeling jittery [Unknown]
  - Depression [Unknown]
